FAERS Safety Report 11878648 (Version 1)
Quarter: 2015Q4

REPORT INFORMATION
  Report Type: Report from Study
  Country: BR (occurrence: BR)
  Receive Date: 20151230
  Receipt Date: 20151230
  Transmission Date: 20160305
  Serious: Yes (Hospitalization)
  Sender: FDA-Public Use
  Company Number: BR-BIOGEN-2015BI086901

PATIENT
  Age: 26 Year
  Sex: Female

DRUGS (5)
  1. TYSABRI [Interacting]
     Active Substance: NATALIZUMAB
     Route: 042
     Dates: start: 201506
  2. TYSABRI [Interacting]
     Active Substance: NATALIZUMAB
     Route: 042
     Dates: end: 201406
  3. TYSABRI [Interacting]
     Active Substance: NATALIZUMAB
     Route: 042
     Dates: end: 201504
  4. TYSABRI [Suspect]
     Active Substance: NATALIZUMAB
     Indication: MULTIPLE SCLEROSIS
     Route: 042
     Dates: start: 201001
  5. TYSABRI [Interacting]
     Active Substance: NATALIZUMAB
     Route: 042
     Dates: start: 201002, end: 201405

REACTIONS (9)
  - Multiple sclerosis relapse [Recovered/Resolved]
  - Irritability [Recovered/Resolved]
  - Pharyngitis [Recovered/Resolved]
  - Urinary tract infection [Recovered/Resolved]
  - Dizziness [Recovered/Resolved]
  - Influenza [Not Recovered/Not Resolved]
  - Hypoaesthesia oral [Recovered/Resolved]
  - Multiple sclerosis [Recovered/Resolved]
  - Visual impairment [Recovered/Resolved]

NARRATIVE: CASE EVENT DATE: 201002
